FAERS Safety Report 6682525-1 (Version None)
Quarter: 2010Q2

REPORT INFORMATION
  Report Type: 
  Country: None (occurrence: None)
  Receive Date: 20100415
  Receipt Date: 20100407
  Transmission Date: 20101027
  Serious: Yes (Other)
  Sender: FDA-Public Use
  Company Number: CA-ASTRAZENECA-2010SE14180

PATIENT
  Sex: Female

DRUGS (10)
  1. SEROQUEL XR [Suspect]
     Dosage: UP TO 1000 MG
     Route: 048
  2. CLOZARIL [Suspect]
     Dates: start: 20060822, end: 20091015
  3. ZYPREXA [Concomitant]
  4. ARIPIPRAZOLE [Concomitant]
  5. LITHIUM [Concomitant]
  6. LITHIUM [Concomitant]
  7. LAMICTAL [Concomitant]
  8. ORAP [Concomitant]
  9. ORAP [Concomitant]
  10. NEUPOGEN [Concomitant]

REACTIONS (8)
  - AGGRESSION [None]
  - AGITATION [None]
  - DRUG INEFFECTIVE [None]
  - HALLUCINATION [None]
  - ILLUSION [None]
  - SCHIZOPHRENIA, DISORGANISED TYPE [None]
  - SOLILOQUY [None]
  - SUPPORTIVE CARE [None]
